FAERS Safety Report 6027484-X (Version None)
Quarter: 2009Q1

REPORT INFORMATION
  Report Type: 
  Country: None (occurrence: None)
  Receive Date: 20090105
  Receipt Date: 20081217
  Transmission Date: 20090719
  Serious: Yes (Death)
  Sender: FDA-Public Use
  Company Number: US-ROCHE-604254

PATIENT
  Sex: Male
  Weight: 96.2 kg

DRUGS (7)
  1. CAPECITABINE [Suspect]
     Indication: COLORECTAL CANCER
     Dosage: LAST DOSE PRIOR TO EVENT 10 DEC 2008. THE DRUG WAS PERMANENTLY DISCONTINUED. DOSEREGIMEN: 5500 MG QD
     Route: 048
     Dates: start: 20081203, end: 20081217
  2. BEVACIZUMAB [Suspect]
     Indication: COLORECTAL CANCER
     Dosage: LAST DOSE PRIOR TO EVENT IN APPROXIMATELY 2008, THE DRUG WAS PERMANENTLY DISCONTINUED, FORM: LIQUID
     Route: 042
     Dates: start: 20080101, end: 20081217
  3. OXALIPLATIN [Suspect]
     Indication: COLORECTAL CANCER
     Dosage: LAST DOSE PRIOR TO EVENT ON 03 DEC 2008. THE DRUG WAS PERMANENTLY DISCONTINUED, FORM: LIQUID
     Route: 042
     Dates: start: 20081203, end: 20081217
  4. COMPAZINE [Concomitant]
     Dates: start: 20080730
  5. COUMADIN [Concomitant]
  6. LEVEMIR [Concomitant]
  7. NOVOLOG [Concomitant]

REACTIONS (1)
  - RHABDOMYOLYSIS [None]
